FAERS Safety Report 10006407 (Version 4)
Quarter: 2014Q3

REPORT INFORMATION
  Report Type: Spontaneous
  Country: JP (occurrence: JP)
  Receive Date: 20140313
  Receipt Date: 20140814
  Transmission Date: 20150326
  Serious: Yes (Other)
  Sender: FDA-Public Use
  Company Number: JP-OTSUKA-JP-2014-12434

PATIENT
  Age: 92 Year
  Sex: Female

DRUGS (21)
  1. LASIX [Concomitant]
     Active Substance: FUROSEMIDE
     Dosage: 20 MG MILLIGRAM(S), QD
     Route: 042
     Dates: start: 20140227, end: 20140228
  2. SPIRONOLACTONE. [Concomitant]
     Active Substance: SPIRONOLACTONE
     Dosage: 50 MG MILLIGRAM(S), DAILY DOSE
     Route: 048
     Dates: start: 20140218, end: 20140501
  3. CIMETIDINE [Concomitant]
     Active Substance: CIMETIDINE
     Dosage: 400 MG MILLIGRAM(S), DAILY DOSE
     Route: 048
  4. LASIX [Concomitant]
     Active Substance: FUROSEMIDE
     Dosage: 30 MG MILLIGRAM(S), DAILY DOSE
     Route: 042
     Dates: start: 20140301, end: 20140327
  5. ROCEPHIN [Concomitant]
     Active Substance: CEFTRIAXONE SODIUM
     Dosage: 2 G GRAM(S), DAILY DOSE
     Route: 041
     Dates: start: 20140219, end: 20140228
  6. SIGMART [Concomitant]
     Active Substance: NICORANDIL
     Dosage: 10 MG MILLIGRAM(S), DAILY DOSE
     Route: 048
  7. FEBURIC [Suspect]
     Active Substance: FEBUXOSTAT
     Indication: PRODUCT USED FOR UNKNOWN INDICATION
     Dosage: 10 MG MILLIGRAM(S), DAILY DOSE
     Route: 048
     Dates: start: 20140225, end: 20140226
  8. HANP [Concomitant]
     Active Substance: CARPERITIDE
     Dosage: 1560 MCG, DAILY DOSE
     Route: 041
     Dates: start: 20140327, end: 20140327
  9. LEBENIN [Concomitant]
     Active Substance: LACTOBACILLUS ACIDOPHILUS\STREPTOCOCCUS FAECAIS
     Dosage: 3.0 G GRAM(S), DAILY DOSE
     Route: 048
     Dates: start: 20140220, end: 20140305
  10. ALDACTONE [Concomitant]
     Active Substance: SPIRONOLACTONE
     Dosage: 50 MG MILLIGRAM(S), DAILY DOSE
     Route: 048
  11. MEQUITOLIDE [Concomitant]
     Dosage: 200 MG MILLIGRAM(S), DAILY DOSE
     Route: 048
  12. LASIX [Concomitant]
     Active Substance: FUROSEMIDE
     Dosage: 20 MG MILLIGRAM(S), QID
     Route: 042
     Dates: start: 20140219, end: 20140226
  13. BFLUID [Concomitant]
     Active Substance: AMINO ACIDS\DEXTROSE\ELECTROLYTES NOS\VITAMINS
     Dosage: 500 ML MILLILITRE(S), DAILY DOSE
     Route: 041
     Dates: start: 20140228, end: 20140228
  14. HANP [Concomitant]
     Active Substance: CARPERITIDE
     Dosage: 3814 MCG, DAILY DOSE
     Route: 041
     Dates: start: 20140218, end: 20140218
  15. HANP [Concomitant]
     Active Substance: CARPERITIDE
     Dosage: 6240 MCG, DAILY DOSE
     Route: 041
     Dates: start: 20140219, end: 20140326
  16. GOREI-SAN [Concomitant]
     Active Substance: HERBALS
     Dosage: 5.0 G GRAM(S), DAILY DOSE
     Route: 048
     Dates: start: 20140221, end: 20140221
  17. NIFEDIPINE. [Concomitant]
     Active Substance: NIFEDIPINE
     Dosage: 20 MG MILLIGRAM(S), DAILY DOSE
     Route: 048
  18. SAMSCA [Suspect]
     Active Substance: TOLVAPTAN
     Indication: OEDEMA DUE TO CARDIAC DISEASE
     Dosage: 3.75 MG MILLIGRAM(S), DAILY DOSE
     Route: 048
     Dates: start: 20140225, end: 20140226
  19. GOREI-SAN [Concomitant]
     Active Substance: HERBALS
     Dosage: 7.5 G GRAM(S), DAILY DOSE
     Route: 048
     Dates: start: 20140222, end: 20140501
  20. BFLUID [Concomitant]
     Active Substance: AMINO ACIDS\DEXTROSE\ELECTROLYTES NOS\VITAMINS
     Indication: DEHYDRATION
     Dosage: 1000 ML MILLILITRE(S), DAILY DOSE
     Route: 041
  21. LASIX [Concomitant]
     Active Substance: FUROSEMIDE
     Dosage: 70 MG MILLIGRAM(S), DAILY DOSE
     Route: 042
     Dates: start: 20140218, end: 20140218

REACTIONS (4)
  - Renal failure acute [Recovered/Resolved with Sequelae]
  - Urine output decreased [Recovered/Resolved]
  - Oedema peripheral [Recovered/Resolved]
  - Dehydration [Recovered/Resolved]

NARRATIVE: CASE EVENT DATE: 20140226
